FAERS Safety Report 5118043-1 (Version None)
Quarter: 2006Q3

REPORT INFORMATION
  Report Type: 
  Country: None (occurrence: None)
  Receive Date: 20060929
  Receipt Date: 20060907
  Transmission Date: 20061208
  Serious: Yes (Hospitalization)
  Sender: FDA-Public Use
  Company Number: FR-ROXANE LABORATORIES, INC-2006-DE-04801GD

PATIENT
  Age: 78 Year
  Sex: Male

DRUGS (3)
  1. PREDNISONE [Suspect]
     Indication: RHEUMATOID ARTHRITIS
  2. METHOTREXATE [Suspect]
     Indication: RHEUMATOID ARTHRITIS
  3. CORTICOIDS [Suspect]
     Indication: RHEUMATOID ARTHRITIS

REACTIONS (4)
  - ENDOPHTHALMITIS [None]
  - JOINT SWELLING [None]
  - SCEDOSPORIUM INFECTION [None]
  - VISUAL ACUITY REDUCED [None]
